FAERS Safety Report 8173395-3 (Version None)
Quarter: 2012Q1

REPORT INFORMATION
  Report Type: 
  Country: None (occurrence: None)
  Receive Date: 20120229
  Receipt Date: 20120222
  Transmission Date: 20120608
  Serious: Yes (Other)
  Sender: FDA-Public Use
  Company Number: US-ASTELLAS-2012US002180

PATIENT
  Sex: Male
  Weight: 82 kg

DRUGS (2)
  1. ERLOTINIB HYDROCHLORIDE [Suspect]
     Indication: PANCREATIC CARCINOMA
     Dosage: 100 MG, UID/QD
     Route: 048
     Dates: start: 20120108
  2. DOXYCYCLINE [Concomitant]
     Indication: INFECTION
     Dosage: UNK
     Route: 048

REACTIONS (2)
  - RASH [None]
  - FOOT FRACTURE [None]
